FAERS Safety Report 4670668-3 (Version None)
Quarter: 2005Q2

REPORT INFORMATION
  Report Type: 
  Country: None (occurrence: None)
  Receive Date: 20050523
  Receipt Date: 20050225
  Transmission Date: 20051028
  Serious: Yes (Congenital Anomaly)
  Sender: FDA-Public Use
  Company Number: 10398

PATIENT

DRUGS (4)
  1. METHOTREXATE [Suspect]
     Indication: NEOPLASM MALIGNANT
  2. CHLORAMBUCIL [Concomitant]
  3. FLUOROURACIL [Concomitant]
  4. PREDNISOLONE [Concomitant]

REACTIONS (9)
  - CARDIAC MURMUR [None]
  - CONGENITAL ANOMALY [None]
  - DRUG EXPOSURE DURING PREGNANCY [None]
  - FACIAL DYSMORPHISM [None]
  - LOWER LIMB DEFORMITY [None]
  - NEONATAL DISORDER [None]
  - PREMATURE BABY [None]
  - PREMATURE LABOUR [None]
  - TRISOMY 21 [None]
